FAERS Safety Report 21485685 (Version 1)
Quarter: 2022Q4

REPORT INFORMATION
  Report Type: Report from Study
  Country: KR (occurrence: KR)
  Receive Date: 20221020
  Receipt Date: 20221020
  Transmission Date: 20230113
  Serious: Yes (Hospitalization, Other)
  Sender: FDA-Public Use
  Company Number: KR-GLAXOSMITHKLINE-KR2022GSK149558

PATIENT

DRUGS (15)
  1. FLUTICASONE FUROATE\UMECLIDINIUM BROMIDE\VILANTEROL TRIFENATATE [Suspect]
     Active Substance: FLUTICASONE FUROATE\UMECLIDINIUM BROMIDE\VILANTEROL TRIFENATATE
     Indication: Chronic obstructive pulmonary disease
     Dosage: UNK UNK, QD
     Route: 055
     Dates: start: 20220322
  2. MONTERIZINE [Concomitant]
     Indication: Chronic obstructive pulmonary disease
     Dosage: 1 UNK,QD
     Route: 048
     Dates: start: 20220506
  3. CODEINE [Concomitant]
     Active Substance: CODEINE
     Indication: Chronic obstructive pulmonary disease
     Dosage: 1 UNK, Z (04 TIMES A DAY)
     Route: 048
     Dates: start: 20190402
  4. NEOMEDICOUGH [Concomitant]
     Indication: Chronic obstructive pulmonary disease
     Dosage: 1 UNK, TID
     Route: 048
     Dates: start: 20210506
  5. ROFLUMILAST [Concomitant]
     Active Substance: ROFLUMILAST
     Indication: Chronic obstructive pulmonary disease
     Dosage: 500 UG, QD
     Route: 048
     Dates: start: 20180405
  6. LIPITOR [Concomitant]
     Active Substance: ATORVASTATIN CALCIUM
     Indication: Metabolic disorder prophylaxis
     Dosage: 10 MG, QD
     Route: 048
     Dates: start: 20210528
  7. CILOSTAN [Concomitant]
     Indication: Cerebral infarction
     Dosage: 200 MG, QD
     Route: 048
     Dates: start: 20200605
  8. NEUTILINE SOFT [Concomitant]
     Indication: Cerebral infarction
     Dosage: 400 MG, BID
     Route: 048
     Dates: start: 20160506
  9. ASPIRIN [Concomitant]
     Active Substance: ASPIRIN
     Indication: Cerebral infarction
     Dosage: 100 MG, QD
     Route: 048
     Dates: start: 20150415
  10. ENTELON [Concomitant]
     Indication: Left ventricular failure
     Dosage: 150 MG, BID
     Route: 048
     Dates: start: 20180830
  11. DUKARB TABLET [Concomitant]
     Indication: Hypertension
     Dosage: 60/10 MG QD
     Route: 048
     Dates: start: 20180208
  12. PIDOGUL [Concomitant]
     Indication: Left ventricular failure
     Dosage: 75 MG, QD
     Route: 048
     Dates: start: 20160525
  13. ASPIRIN [Concomitant]
     Active Substance: ASPIRIN
     Indication: Product used for unknown indication
     Dosage: 20 MG
     Route: 065
  14. CLOPIDOGREL [Concomitant]
     Active Substance: CLOPIDOGREL BISULFATE
     Indication: Product used for unknown indication
     Dosage: 20 MG
     Route: 065
  15. ATORVASTATIN [Concomitant]
     Active Substance: ATORVASTATIN
     Indication: Product used for unknown indication
     Dosage: 20 MG
     Route: 065

REACTIONS (1)
  - Cerebral infarction [Recovered/Resolved]

NARRATIVE: CASE EVENT DATE: 20221007
